FAERS Safety Report 13396167 (Version 1)
Quarter: 2017Q2

REPORT INFORMATION
  Report Type: Spontaneous
  Country: US (occurrence: US)
  Receive Date: 20170403
  Receipt Date: 20170403
  Transmission Date: 20170830
  Serious: Yes (Other)
  Sender: FDA-Public Use
  Company Number: US-009507513-1703USA011826

PATIENT
  Age: 30 Year
  Sex: Female
  Weight: 104.31 kg

DRUGS (3)
  1. CODEINE PHOSPHATE (+) PROMETHAZINE HYDROCHLORIDE [Concomitant]
     Dosage: UNK
  2. IBUPROFEN. [Concomitant]
     Active Substance: IBUPROFEN
     Dosage: UNK
  3. NUVARING [Suspect]
     Active Substance: ETHINYL ESTRADIOL\ETONOGESTREL
     Indication: CONTRACEPTION
     Dosage: 1 DF, ^IN FOR 7 WEEKS THEN LEFT IT OUT FOR GOING ON 2 WEEKS^
     Route: 067
     Dates: start: 201601

REACTIONS (5)
  - Inappropriate schedule of drug administration [Unknown]
  - Incorrect drug administration duration [Unknown]
  - Pregnancy on contraceptive [Unknown]
  - Menstruation delayed [Not Recovered/Not Resolved]
  - Unintended pregnancy [Unknown]

NARRATIVE: CASE EVENT DATE: 201703
